FAERS Safety Report 19447511 (Version 1)
Quarter: 2021Q2

REPORT INFORMATION
  Report Type: Spontaneous
  Country: DE (occurrence: DE)
  Receive Date: 20210622
  Receipt Date: 20210622
  Transmission Date: 20210717
  Serious: Yes (Death, Other)
  Sender: FDA-Public Use
  Company Number: DE-INFO-001262

PATIENT
  Age: 78 Year
  Sex: Male
  Weight: 81 kg

DRUGS (3)
  1. PIRITRAMIDE [Concomitant]
     Active Substance: PIRITRAMIDE
     Indication: ANALGESIC THERAPY
     Route: 042
  2. METAMIZOLE [Concomitant]
     Active Substance: METAMIZOLE
     Indication: ANALGESIC THERAPY
     Route: 042
  3. ROPIVACAINE 0.2% [Suspect]
     Active Substance: ROPIVACAINE
     Indication: VEHICLE SOLUTION USE
     Dosage: GAVE 0.2 L BAGS WITH 0.2% (400 MG/BAG)
     Route: 042

REACTIONS (5)
  - Pulmonary oedema [Fatal]
  - Intracranial pressure increased [Fatal]
  - Brain oedema [Fatal]
  - Wrong product administered [Fatal]
  - Pulmonary haemorrhage [Fatal]
